FAERS Safety Report 13708046 (Version 1)
Quarter: 2017Q2

REPORT INFORMATION
  Report Type: Spontaneous
  Country: US (occurrence: US)
  Receive Date: 20170630
  Receipt Date: 20170630
  Transmission Date: 20170830
  Serious: No
  Sender: FDA-Public Use
  Company Number: US-PRINSTON PHARMACEUTICAL INC.-2017PRN00215

PATIENT
  Sex: Female
  Weight: 79.37 kg

DRUGS (11)
  1. VALSARTAN. [Suspect]
     Active Substance: VALSARTAN
     Indication: HYPERTENSION
     Dosage: 320 MG, 1X/DAY
     Route: 048
     Dates: start: 2016, end: 2016
  2. LISINOPRIL. [Suspect]
     Active Substance: LISINOPRIL
     Dosage: UNK
     Route: 048
  3. GLUCOSAMINE - CHONDROITIN - MSM [Concomitant]
  4. OMEGA OILS [Concomitant]
  5. COQ10 [Concomitant]
     Active Substance: UBIDECARENONE
  6. VALSARTAN. [Suspect]
     Active Substance: VALSARTAN
     Dosage: 320 MG, 1X/DAY
     Route: 048
     Dates: start: 20170419
  7. LORATADINE. [Concomitant]
     Active Substance: LORATADINE
  8. LUTINE [Concomitant]
  9. METOPROLOL. [Concomitant]
     Active Substance: METOPROLOL
  10. LIPITOR [Concomitant]
     Active Substance: ATORVASTATIN CALCIUM
     Dosage: UNK, 3X/WEEK
  11. XARELTO [Concomitant]
     Active Substance: RIVAROXABAN

REACTIONS (9)
  - Asthenopia [Not Recovered/Not Resolved]
  - Discomfort [Not Recovered/Not Resolved]
  - Pulmonary congestion [Recovered/Resolved]
  - Chest discomfort [Recovered/Resolved]
  - Rhinorrhoea [Recovered/Resolved]
  - Cough [Recovered/Resolved]
  - Photophobia [Not Recovered/Not Resolved]
  - Eye pain [Not Recovered/Not Resolved]
  - Lacrimation increased [Not Recovered/Not Resolved]

NARRATIVE: CASE EVENT DATE: 2016
